FAERS Safety Report 7425359-2 (Version None)
Quarter: 2011Q2

REPORT INFORMATION
  Report Type: 
  Country: None (occurrence: None)
  Receive Date: 20110414
  Receipt Date: 20110408
  Transmission Date: 20111010
  Serious: Yes (Hospitalization)
  Sender: FDA-Public Use
  Company Number: B0711799A

PATIENT
  Age: 76 Year
  Sex: Female

DRUGS (2)
  1. FURUSEMIDE (FORMULATION UNKNOWN) (FUROSEMIDE) [Suspect]
     Indication: HYPERTENSION
  2. TRIAMTERENE AND HYDROCHLOROTHIAZIDE [Suspect]
     Indication: HYPERTENSION

REACTIONS (6)
  - STRESS CARDIOMYOPATHY [None]
  - DISORIENTATION [None]
  - ELECTROCARDIOGRAM ST SEGMENT ELEVATION [None]
  - AGITATION [None]
  - HYPONATRAEMIA [None]
  - CONFUSIONAL STATE [None]
